FAERS Safety Report 9964049 (Version 1)
Quarter: 2014Q1

REPORT INFORMATION
  Report Type: Spontaneous
  Country: IE (occurrence: IE)
  Receive Date: 20140305
  Receipt Date: 20140305
  Transmission Date: 20141002
  Serious: Yes (Other)
  Sender: FDA-Public Use
  Company Number: IE-GLAXOSMITHKLINE-B0966750A

PATIENT
  Age: 81 Year
  Sex: Male

DRUGS (11)
  1. ALKERAN [Suspect]
     Indication: PRODUCT USED FOR UNKNOWN INDICATION
     Dosage: 4MGM2 PER DAY
     Route: 065
  2. VELCADE [Suspect]
     Indication: PLASMA CELL MYELOMA
     Dosage: 1.3MGM2 PER DAY
     Route: 042
     Dates: start: 20130806
  3. ZANTAC [Concomitant]
  4. CLOPIDOGREL [Concomitant]
  5. MYCOSTATIN [Concomitant]
  6. ASPIRIN [Concomitant]
  7. VALTREX [Concomitant]
  8. ALLOPURINOL [Concomitant]
  9. VALCYTE [Concomitant]
  10. BISOPROLOL [Concomitant]
  11. PREDNISOLONE [Concomitant]

REACTIONS (2)
  - Neutropenia [Not Recovered/Not Resolved]
  - Anaemia [Not Recovered/Not Resolved]
